FAERS Safety Report 22172930 (Version 1)
Quarter: 2023Q2

REPORT INFORMATION
  Report Type: Other
  Country: CA (occurrence: CA)
  Receive Date: 20230404
  Receipt Date: 20230404
  Transmission Date: 20230721
  Serious: Yes (Other)
  Sender: FDA-Public Use
  Company Number: CA-Covis Pharma Europe B.V.-2023COV00753

PATIENT
  Sex: Female

DRUGS (10)
  1. ALVESCO [Suspect]
     Active Substance: CICLESONIDE
     Indication: Product used for unknown indication
     Dosage: 2 DOSAGE FORMS 2 EVERY 1 DAYS
     Route: 055
  2. COMBIVENT [Suspect]
     Active Substance: ALBUTEROL SULFATE\IPRATROPIUM BROMIDE
     Indication: Product used for unknown indication
     Route: 065
  3. FLUTICASONE PROPIONATE\SALMETEROL XINAFOATE [Suspect]
     Active Substance: FLUTICASONE PROPIONATE\SALMETEROL XINAFOATE
     Indication: Asthma
     Dosage: 2 DOSAGE FORMS 2 EVERY 1 DAYS
     Route: 065
  4. PREDNISONE [Suspect]
     Active Substance: PREDNISONE
     Indication: Product used for unknown indication
     Route: 065
  5. PREDNISONE [Suspect]
     Active Substance: PREDNISONE
     Route: 065
  6. PREDNISONE [Suspect]
     Active Substance: PREDNISONE
     Route: 065
  7. PREDNISONE [Suspect]
     Active Substance: PREDNISONE
     Route: 065
  8. PREDNISONE [Suspect]
     Active Substance: PREDNISONE
     Route: 065
  9. SEPTRA [Suspect]
     Active Substance: SULFAMETHOXAZOLE\TRIMETHOPRIM
     Indication: Product used for unknown indication
     Route: 065
  10. SINGULAIR [Suspect]
     Active Substance: MONTELUKAST SODIUM
     Indication: Product used for unknown indication
     Route: 065

REACTIONS (29)
  - Arthritis [Unknown]
  - Adrenal insufficiency [Unknown]
  - Asthma [Unknown]
  - Autoimmune disorder [Unknown]
  - Chronic obstructive pulmonary disease [Unknown]
  - Clostridium difficile infection [Unknown]
  - Colitis [Unknown]
  - Cough [Unknown]
  - Drug hypersensitivity [Unknown]
  - Dyspnoea [Unknown]
  - Fracture [Unknown]
  - Gastrooesophageal reflux disease [Unknown]
  - Hypertension [Unknown]
  - Hypoparathyroidism [Unknown]
  - Hypothyroidism [Unknown]
  - Increased upper airway secretion [Unknown]
  - Mucosal inflammation [Unknown]
  - Mycobacterium test positive [Unknown]
  - Obstructive sleep apnoea syndrome [Unknown]
  - Osteoporosis [Unknown]
  - Oxygen saturation decreased [Unknown]
  - Pneumonitis [Unknown]
  - Pyrexia [Unknown]
  - Rash [Unknown]
  - Recurrent cancer [Unknown]
  - Respiratory disorder [Unknown]
  - Rhinitis [Unknown]
  - Rhinorrhoea [Unknown]
  - Thyroidectomy [Unknown]
